FAERS Safety Report 16491667 (Version 1)
Quarter: 2019Q2

REPORT INFORMATION
  Report Type: Spontaneous
  Country: US (occurrence: US)
  Receive Date: 20190520
  Receipt Date: 20190520
  Transmission Date: 20190711
  Serious: No
  Sender: FDA-Public Use
  Company Number: None

PATIENT
  Age: 56 Year
  Sex: Female

DRUGS (1)
  1. REPATHA [Suspect]
     Active Substance: EVOLOCUMAB
     Dosage: OTHER
     Route: 058
     Dates: start: 201904, end: 20190505

REACTIONS (8)
  - Influenza like illness [None]
  - Dizziness [None]
  - Fatigue [None]
  - Hot flush [None]
  - Abdominal discomfort [None]
  - Myalgia [None]
  - Vertigo [None]
  - Nausea [None]

NARRATIVE: CASE EVENT DATE: 20190520
